FAERS Safety Report 15231022 (Version 1)
Quarter: 2018Q3

REPORT INFORMATION
  Report Type: Spontaneous
  Country: US (occurrence: US)
  Receive Date: 20180802
  Receipt Date: 20180802
  Transmission Date: 20181010
  Serious: Yes (Other)
  Sender: FDA-Public Use
  Company Number: US-ACCORD-064574

PATIENT
  Age: 66 Year
  Sex: Female
  Weight: 76.66 kg

DRUGS (12)
  1. DOCETAXEL ACCORD [Suspect]
     Active Substance: DOCETAXEL
     Indication: METASTASES TO BREAST
     Dosage: DOSE: 140 MG?160 MG
     Dates: start: 20150401, end: 20150715
  2. NORCO [Concomitant]
     Active Substance: ACETAMINOPHEN\HYDROCODONE BITARTRATE
  3. KADCYLA [Suspect]
     Active Substance: ADO-TRASTUZUMAB EMTANSINE
     Indication: METASTASES TO BREAST
  4. URSODEOXYCHOLIC ACID [Concomitant]
     Active Substance: URSODIOL
     Dates: start: 19930101
  5. HERCEPTIN [Suspect]
     Active Substance: TRASTUZUMAB
     Indication: METASTASES TO BREAST
  6. IBRANCE [Suspect]
     Active Substance: PALBOCICLIB
     Indication: METASTASES TO BREAST
  7. DARBEPOETIN ALFA [Suspect]
     Active Substance: DARBEPOETIN ALFA
     Indication: METASTASES TO BREAST
  8. RESTORIL [Concomitant]
     Active Substance: TEMAZEPAM
  9. PERJETA [Suspect]
     Active Substance: PERTUZUMAB
     Indication: METASTASES TO BREAST
  10. VENLAFAXINE/VENLAFAXINE HYDROCHLORIDE [Concomitant]
  11. FASLODEX [Suspect]
     Active Substance: FULVESTRANT
     Indication: METASTASES TO BREAST
  12. DEXILANT [Concomitant]
     Active Substance: DEXLANSOPRAZOLE

REACTIONS (1)
  - Alopecia [Not Recovered/Not Resolved]

NARRATIVE: CASE EVENT DATE: 20160115
